FAERS Safety Report 17360398 (Version 2)
Quarter: 2020Q1

REPORT INFORMATION
  Report Type: Report from Study
  Country: GT (occurrence: GT)
  Receive Date: 20200203
  Receipt Date: 20200207
  Transmission Date: 20200409
  Serious: Yes (Death)
  Sender: FDA-Public Use
  Company Number: NVSC2020GT026560

PATIENT
  Sex: Female
  Weight: 86.17 kg

DRUGS (1)
  1. CO-DIOVAN [Suspect]
     Active Substance: HYDROCHLOROTHIAZIDE\VALSARTAN
     Indication: HYPERTENSION
     Dosage: 1 DF, QD (VALSARTAN 160 MG/HYDROCHLOROTHIAZIDE 12.5 MG)
     Route: 048

REACTIONS (2)
  - Cardio-respiratory arrest [Fatal]
  - Arthritis [Unknown]
